FAERS Safety Report 21642177 (Version 1)
Quarter: 2022Q4

REPORT INFORMATION
  Report Type: Spontaneous
  Country: US (occurrence: US)
  Receive Date: 20221125
  Receipt Date: 20221125
  Transmission Date: 20230112
  Serious: Yes (Life-Threatening, Hospitalization, Other)
  Sender: FDA-Public Use
  Company Number: US-HORIZON THERAPEUTICS-HZN-2022-009139

PATIENT

DRUGS (2)
  1. RAYOS [Suspect]
     Active Substance: PREDNISONE
     Indication: Nephrotic syndrome
     Dosage: 30 MG, ON ALTERNATE DAYS
     Route: 065
     Dates: start: 201808
  2. MYCOPHENOLATE MOFETIL [Suspect]
     Active Substance: MYCOPHENOLATE MOFETIL
     Indication: Nephrotic syndrome
     Dosage: 300 MG, BID
     Route: 065
     Dates: start: 201803

REACTIONS (3)
  - Meningitis pneumococcal [Unknown]
  - Steroid dependence [Unknown]
  - Infection masked [Unknown]

NARRATIVE: CASE EVENT DATE: 20180901
